FAERS Safety Report 9495409 (Version 5)
Quarter: 2013Q4

REPORT INFORMATION
  Report Type: Report from Study
  Country: BR (occurrence: BR)
  Receive Date: 20130903
  Receipt Date: 20131107
  Transmission Date: 20140711
  Serious: Yes (Hospitalization, Other)
  Sender: FDA-Public Use
  Company Number: PHHO2013BR011296

PATIENT
  Age: 33 Year
  Sex: Female
  Weight: 63 kg

DRUGS (2)
  1. SIMULECT [Suspect]
     Indication: RENAL TRANSPLANT
     Dosage: 20 MG, ONCE/SINGLE
     Route: 042
     Dates: start: 20130307
  2. MYCOPHENOLIC ACID [Suspect]
     Indication: RENAL TRANSPLANT
     Dosage: 720 MG, BID
     Route: 048
     Dates: start: 20130308

REACTIONS (2)
  - Pulmonary sepsis [Recovered/Resolved]
  - Focal segmental glomerulosclerosis [Recovered/Resolved with Sequelae]
